FAERS Safety Report 7767900-6 (Version None)
Quarter: 2011Q3

REPORT INFORMATION
  Report Type: 
  Country: None (occurrence: None)
  Receive Date: 20110922
  Receipt Date: 20110614
  Transmission Date: 20111222
  Serious: No
  Sender: FDA-Public Use
  Company Number: US-ASTRAZENECA-2011SE36200

PATIENT
  Age: 41 Year
  Sex: Female
  Weight: 58.1 kg

DRUGS (2)
  1. SEROQUEL [Suspect]
     Indication: INSOMNIA
     Route: 048
     Dates: start: 20010101
  2. PRISTIQ [Concomitant]

REACTIONS (5)
  - OFF LABEL USE [None]
  - DIARRHOEA [None]
  - VOMITING [None]
  - FOOD POISONING [None]
  - HEADACHE [None]
